FAERS Safety Report 12390614 (Version 6)
Quarter: 2017Q3

REPORT INFORMATION
  Report Type: Report from Study
  Country: HU (occurrence: HU)
  Receive Date: 20160520
  Receipt Date: 20170720
  Transmission Date: 20171127
  Serious: Yes (Death, Life-Threatening, Hospitalization)
  Sender: FDA-Public Use
  Company Number: HU-AMGEN-HUNCT2016064464

PATIENT
  Age: 77 Year
  Sex: Male

DRUGS (11)
  1. ZORTILA [Concomitant]
     Dosage: 4 MG, UNK
     Route: 042
     Dates: start: 20160427, end: 20160427
  2. VITAMIN E [Concomitant]
     Active Substance: .ALPHA.-TOCOPHEROL
     Dosage: 100 MG, UNK
     Route: 048
     Dates: start: 2015, end: 20160512
  3. VITAMIN D [Concomitant]
     Active Substance: CHOLECALCIFEROL
     Dosage: 2000 IU, UNK
     Route: 048
     Dates: start: 2015, end: 20160512
  4. CARFILZOMIB [Suspect]
     Active Substance: CARFILZOMIB
     Indication: PLASMA CELL MYELOMA
     Dosage: 43 MG, PER CHEMO REGIM
     Route: 042
     Dates: start: 20160427, end: 20160511
  5. SALSOL [Concomitant]
     Active Substance: ALBUTEROL SULFATE
     Dosage: 250 ML, UNK
     Route: 042
     Dates: start: 20160427, end: 20160511
  6. ACICLOVIR [Concomitant]
     Active Substance: ACYCLOVIR
     Dosage: 250-400 MG, UNK
     Dates: start: 2015, end: 20160516
  7. VALSARTAN SANDOZ [Concomitant]
     Active Substance: VALSARTAN
     Dosage: 160 MG, UNK
     Route: 048
     Dates: start: 2006, end: 20160512
  8. ASPIRIN PROTECT [Concomitant]
     Active Substance: ASPIRIN
     Dosage: 100 MG, UNK
     Route: 048
     Dates: start: 2015, end: 20160512
  9. DEXAMETHASONE. [Suspect]
     Active Substance: DEXAMETHASONE
     Indication: PLASMA CELL MYELOMA
     Dosage: 40 MG, PER CHEMO REGIM
     Route: 042
     Dates: start: 20160427, end: 20160510
  10. FUROSEMID [Concomitant]
     Active Substance: FUROSEMIDE
     Dosage: 40 MG, UNK
     Route: 042
     Dates: start: 20160427, end: 20160427
  11. NOACID [Concomitant]
     Active Substance: ALUMINUM HYDROXIDE
     Dosage: 20 MG, UNK
     Route: 048
     Dates: start: 2011, end: 20160512

REACTIONS (1)
  - Plasma cell myeloma [Fatal]

NARRATIVE: CASE EVENT DATE: 20160512
